FAERS Safety Report 6370726-1 (Version None)
Quarter: 2009Q3

REPORT INFORMATION
  Report Type: 
  Country: None (occurrence: None)
  Receive Date: 20090923
  Receipt Date: 20070710
  Transmission Date: 20100115
  Serious: No
  Sender: FDA-Public Use
  Company Number: US-ASTRAZENECA-2006UW25152

PATIENT
  Age: 19699 Day
  Sex: Male
  Weight: 95.7 kg

DRUGS (27)
  1. SEROQUEL [Suspect]
     Route: 048
     Dates: start: 20000817, end: 20050708
  2. SEROQUEL [Suspect]
     Route: 048
     Dates: start: 20060331
  3. LORAZEPAM [Concomitant]
     Route: 048
  4. KEMADRIN [Concomitant]
     Dosage: 10 - 15 MG DAILY
     Route: 048
  5. GLYBURIDE [Concomitant]
     Route: 048
  6. LOVASTATIN [Concomitant]
     Dosage: 20 - 40 MG DAILY
     Route: 048
  7. TRICOR [Concomitant]
     Dosage: STRENGTH 145 - 160 MG, DOSE 145 - 160 DAILY
     Route: 048
  8. NAPROSYN [Concomitant]
     Dosage: STRENGTH 375 MG, 500 MG, DOSE 375 MG TID WITH FOOD P.R.N.
     Route: 048
  9. CYCLOBENZAPRINE [Concomitant]
     Route: 048
  10. NABUMETONE [Concomitant]
     Route: 048
  11. HYDROCODONE BITARTRATE AND ACETAMINOPHEN [Concomitant]
     Dosage: STRENGTH HYDROCODONE 5 MG, PARACETAMOL 500 MG
     Route: 048
  12. ZOLOFT [Concomitant]
     Route: 048
  13. ETODOLAC [Concomitant]
     Route: 048
  14. ULTRACET [Concomitant]
     Dosage: STRENGTH 325/ 37.5 MG
     Route: 048
  15. SONATA [Concomitant]
     Route: 048
  16. REMERON [Concomitant]
     Route: 048
  17. TRAZODONE [Concomitant]
     Route: 048
  18. AMBIEN [Concomitant]
     Route: 048
  19. CARISOPRODOL [Concomitant]
     Route: 048
  20. PAXIL [Concomitant]
     Route: 048
  21. GEODON [Concomitant]
     Dosage: STRENGTH 40 - 200 MG
     Route: 048
  22. DOCUSATE [Concomitant]
     Route: 048
  23. NICOTROL [Concomitant]
     Route: 055
  24. OXYCODONE HCL AND ACETAMINOPHEN [Concomitant]
     Dosage: STRENGTH OXYCODONE 5 MG, PARACETAMOL 325 MG
     Route: 048
  25. PROPOXYPHENE-N [Concomitant]
     Dosage: STRENGTH 100 - 650 MG
     Route: 048
  26. TEMAZEPAM [Concomitant]
     Route: 048
  27. AMOXICILLIN AND CLAVULANATE POTASSIUM [Concomitant]
     Dosage: STRENGTH AMOXYCILLIN 875 MG AND CLAVULANIC ACID 125 MG
     Route: 048

REACTIONS (18)
  - ASTIGMATISM [None]
  - CELLULITIS [None]
  - DIABETES MELLITUS [None]
  - DIPLOPIA [None]
  - EAR CANAL STENOSIS [None]
  - GLUCOSE TOLERANCE IMPAIRED [None]
  - HYPERGLYCAEMIA [None]
  - INSOMNIA [None]
  - JOINT SPRAIN [None]
  - KERATOSIS OBTURANS [None]
  - PAIN IN EXTREMITY [None]
  - PARAESTHESIA [None]
  - PRESBYOPIA [None]
  - PROCTALGIA [None]
  - RECTAL FISSURE [None]
  - SKIN LACERATION [None]
  - VISION BLURRED [None]
  - WOUND INFECTION [None]
